FAERS Safety Report 5002005-9 (Version None)
Quarter: 2006Q2

REPORT INFORMATION
  Report Type: 
  Country: None (occurrence: None)
  Receive Date: 20060515
  Receipt Date: 20060510
  Transmission Date: 20061013
  Serious: Yes (Hospitalization)
  Sender: FDA-Public Use
  Company Number: US-MERCK-0605USA01886

PATIENT
  Age: 57 Year
  Sex: Female

DRUGS (5)
  1. FOSAMAX [Suspect]
     Indication: OSTEOPOROSIS
     Route: 048
     Dates: start: 20010101, end: 20041001
  2. CLINDAMYCIN [Concomitant]
     Route: 065
  3. ANTIMICROBIAL (UNSPECIFIED) [Concomitant]
     Route: 065
  4. PREMPRO [Concomitant]
     Route: 065
  5. BEXTRA [Concomitant]
     Route: 065

REACTIONS (5)
  - CLOSTRIDIAL INFECTION [None]
  - JAW DISORDER [None]
  - ORAL PAIN [None]
  - SINUSITIS [None]
  - TOOTH INFECTION [None]
